FAERS Safety Report 6348199-4 (Version None)
Quarter: 2009Q3

REPORT INFORMATION
  Report Type: 
  Country: None (occurrence: None)
  Receive Date: 20090908
  Receipt Date: 20090901
  Transmission Date: 20100115
  Serious: Yes (Hospitalization)
  Sender: FDA-Public Use
  Company Number: 2009AL005741

PATIENT
  Age: 28 Year
  Sex: Female

DRUGS (2)
  1. FLUVOXAMINE MALEATE [Suspect]
     Indication: DEPRESSION
     Dosage: 100 MG; X1;
  2. ANALGESIC COMBINATION [Concomitant]

REACTIONS (5)
  - ALKALOSIS [None]
  - CONVULSION [None]
  - HYPOTONIA [None]
  - SEROTONIN SYNDROME [None]
  - TREMOR [None]
